FAERS Safety Report 20310268 (Version 11)
Quarter: 2023Q1

REPORT INFORMATION
  Report Type: Spontaneous
  Country: US (occurrence: US)
  Receive Date: 20220107
  Receipt Date: 20230302
  Transmission Date: 20230417
  Serious: Yes (Disabling, Other)
  Sender: FDA-Public Use
  Company Number: US-PFIZER INC-202200020967

PATIENT
  Age: 57 Year
  Sex: Female

DRUGS (1)
  1. XELJANZ XR [Suspect]
     Active Substance: TOFACITINIB CITRATE
     Dosage: 11 MG
     Dates: end: 20221212

REACTIONS (13)
  - Blindness [Not Recovered/Not Resolved]
  - Retinal haemorrhage [Not Recovered/Not Resolved]
  - Eye pain [Not Recovered/Not Resolved]
  - Drug dependence [Unknown]
  - Product prescribing issue [Unknown]
  - Laboratory test abnormal [Unknown]
  - Pain [Recovering/Resolving]
  - Swelling [Unknown]
  - Bedridden [Unknown]
  - Loss of personal independence in daily activities [Unknown]
  - Red blood cell sedimentation rate abnormal [Unknown]
  - Inflammation [Unknown]
  - Musculoskeletal stiffness [Unknown]
